FAERS Safety Report 5042253-5 (Version None)
Quarter: 2006Q2

REPORT INFORMATION
  Report Type: 
  Country: None (occurrence: None)
  Receive Date: 20060627
  Receipt Date: 20060615
  Transmission Date: 20061013
  Serious: Yes (Other)
  Sender: FDA-Public Use
  Company Number: 2005169912

PATIENT
  Sex: Male
  Weight: 3 kg

DRUGS (3)
  1. VIRACEPT [Suspect]
     Indication: HIV TEST POSITIVE
     Dosage: 2500 MG, ORAL
     Route: 048
     Dates: start: 20051018
  2. COMBIVIR [Suspect]
     Indication: HIV TEST POSITIVE
     Dosage: 2  DOSAGE FORM, ORAL
     Route: 048
     Dates: start: 20051018
  3. RETROVIR [Suspect]
     Indication: HIV TEST POSITIVE
     Dosage: SEE IMAGE, INTRAVENOUS
     Route: 042
     Dates: start: 20060323, end: 20060323

REACTIONS (3)
  - DRUG EXPOSURE DURING PREGNANCY [None]
  - PILONIDAL CYST CONGENITAL [None]
  - TRISOMY 18 [None]
